FAERS Safety Report 7762747-9 (Version None)
Quarter: 2011Q3

REPORT INFORMATION
  Report Type: 
  Country: None (occurrence: None)
  Receive Date: 20110920
  Receipt Date: 20110919
  Transmission Date: 20111222
  Serious: Yes (Other)
  Sender: FDA-Public Use
  Company Number: US-PFIZER INC-2011222400

PATIENT
  Sex: Male
  Weight: 73.469 kg

DRUGS (3)
  1. CHANTIX [Suspect]
     Indication: SMOKING CESSATION THERAPY
     Dosage: 0.5 MG, 1X/DAY
     Route: 048
     Dates: start: 20110917, end: 20110919
  2. ZOFRAN [Concomitant]
     Indication: NAUSEA
     Dosage: UNK
  3. OPIUM [Concomitant]
     Indication: SHORT-BOWEL SYNDROME
     Dosage: UNK

REACTIONS (7)
  - ASTHENIA [None]
  - DEPRESSION [None]
  - PARANOIA [None]
  - FALL [None]
  - BALANCE DISORDER [None]
  - SOMNOLENCE [None]
  - GAIT DISTURBANCE [None]
